FAERS Safety Report 14314343 (Version 1)
Quarter: 2017Q4

REPORT INFORMATION
  Report Type: Spontaneous
  Country: DE (occurrence: DE)
  Receive Date: 20171221
  Receipt Date: 20171221
  Transmission Date: 20180321
  Serious: Yes (Life-Threatening, Hospitalization)
  Sender: FDA-Public Use
  Company Number: DE-CIPLA LTD.-2017DE23815

PATIENT

DRUGS (5)
  1. CHLORPROTHIXENE [Concomitant]
     Active Substance: CHLORPROTHIXENE
     Dosage: 100 MG, UNK (DOSAGE FORM: UNSPECIFIED)
     Route: 048
  2. RISPERIDONE. [Interacting]
     Active Substance: RISPERIDONE
     Indication: BIPOLAR DISORDER
  3. SERTRALINE [Suspect]
     Active Substance: SERTRALINE HYDROCHLORIDE
     Indication: BIPOLAR DISORDER
     Dosage: 100 MG, UNK (DOSAGE FORM: UNSPECIFIED)
     Route: 048
  4. RISPERIDONE. [Interacting]
     Active Substance: RISPERIDONE
     Indication: DEPRESSION
     Dosage: 2 MG, QD (DOSAGE FORM: UNSPECIFIED)
     Route: 048
     Dates: start: 20150906, end: 20170104
  5. SERTRALINE [Interacting]
     Active Substance: SERTRALINE HYDROCHLORIDE
     Dosage: 100 MG, UNK (DOSAGE FORM: UNSPECIFIED)
     Route: 048

REACTIONS (6)
  - Drug ineffective for unapproved indication [Unknown]
  - Drug interaction [Unknown]
  - Off label use [Unknown]
  - Depression [Unknown]
  - Hunger [Recovered/Resolved]
  - Weight increased [Recovering/Resolving]

NARRATIVE: CASE EVENT DATE: 201509
